FAERS Safety Report 7938957-4 (Version None)
Quarter: 2011Q4

REPORT INFORMATION
  Report Type: 
  Country: None (occurrence: None)
  Receive Date: 20111124
  Receipt Date: 20111122
  Transmission Date: 20120403
  Serious: No
  Sender: FDA-Public Use
  Company Number: US-PFIZER INC-2011286052

PATIENT
  Sex: Female
  Weight: 96.145 kg

DRUGS (2)
  1. CHANTIX [Suspect]
     Indication: SMOKING CESSATION THERAPY
     Dosage: 0.5 MG, 1X/DAY
     Route: 048
     Dates: start: 20111021, end: 20111001
  2. CHANTIX [Suspect]
     Dosage: 1 MG, 2X/DAY
     Route: 048
     Dates: start: 20111027, end: 20111027

REACTIONS (5)
  - NASOPHARYNGITIS [None]
  - INCORRECT DOSE ADMINISTERED [None]
  - ANXIETY [None]
  - MOOD ALTERED [None]
  - RASH [None]
